FAERS Safety Report 8860473 (Version 2)
Quarter: 2012Q4

REPORT INFORMATION
  Report Type: 
  Country: CN (occurrence: CN)
  Receive Date: 20121025
  Receipt Date: 20121204
  Transmission Date: 20130627
  Serious: Yes (Death)
  Sender: FDA-Public Use
  Company Number: CN-JNJFOC-20121012236

PATIENT

DRUGS (4)
  1. SPORANOX [Suspect]
     Indication: PNEUMONIA CRYPTOCOCCAL
     Dosage: 200-400 mg per day for 6-12 months
     Route: 048
  2. FLUCONAZOLE [Suspect]
     Indication: PNEUMONIA CRYPTOCOCCAL
     Dosage: 200-400 mg per day for 6-12 months
     Route: 048
  3. AMPHOTERICIN B [Suspect]
     Indication: PNEUMONIA CRYPTOCOCCAL
     Dosage: 0.5-0.8 mg/ (kg.d) once every 6 hours
     Route: 048
  4. FLUOROCYTOSINE [Suspect]
     Indication: PNEUMONIA CRYPTOCOCCAL
     Route: 048

REACTIONS (1)
  - Death [Fatal]
